FAERS Safety Report 25547634 (Version 1)
Quarter: 2025Q3

REPORT INFORMATION
  Report Type: Report from Study
  Country: EU (occurrence: EU)
  Receive Date: 20250714
  Receipt Date: 20250714
  Transmission Date: 20251021
  Serious: Yes (Other)
  Sender: Norvium Bioscience
  Company Number: EU-Norvium Bioscience LLC-080380

PATIENT
  Age: 37 Year
  Sex: Female

DRUGS (9)
  1. FENOFIBRATE [Suspect]
     Active Substance: FENOFIBRATE
     Indication: Medulloblastoma
     Route: 048
  2. CELECOXIB [Suspect]
     Active Substance: CELECOXIB
     Indication: Medulloblastoma
     Route: 048
  3. CYTARABINE [Suspect]
     Active Substance: CYTARABINE
     Indication: Medulloblastoma
  4. THALIDOMIDE [Suspect]
     Active Substance: THALIDOMIDE
     Indication: Medulloblastoma
     Route: 048
  5. ETOPOSIDE [Suspect]
     Active Substance: ETOPOSIDE
     Indication: Medulloblastoma
     Route: 048
  6. CYCLOPHOSPHAMIDE [Suspect]
     Active Substance: CYCLOPHOSPHAMIDE
     Indication: Medulloblastoma
     Route: 048
  7. BEVACIZUMAB [Suspect]
     Active Substance: BEVACIZUMAB
     Indication: Medulloblastoma
     Route: 042
  8. SULFAMETHOXAZOLE+TRIMETHOPRIME [Concomitant]
     Indication: Infection prophylaxis
  9. ETOPOSIDE [Suspect]
     Active Substance: ETOPOSIDE
     Indication: Medulloblastoma

REACTIONS (5)
  - Lymphopenia [Unknown]
  - Neurotoxicity [Unknown]
  - Neutropenia [Unknown]
  - Oesophageal candidiasis [Unknown]
  - Arachnoiditis [Unknown]
